FAERS Safety Report 7523995-6 (Version None)
Quarter: 2011Q2

REPORT INFORMATION
  Report Type: 
  Country: None (occurrence: None)
  Receive Date: 20110604
  Receipt Date: 20110525
  Transmission Date: 20111010
  Serious: Yes (Other)
  Sender: FDA-Public Use
  Company Number: US-AMGEN-USASP2011027637

PATIENT
  Age: 49 Year
  Sex: Male
  Weight: 113.38 kg

DRUGS (1)
  1. PROCRIT [Suspect]
     Indication: HEPATITIS C
     Dosage: 40000 IU, UNK
     Route: 058

REACTIONS (2)
  - INJECTION SITE SWELLING [None]
  - FILARIASIS [None]
